FAERS Safety Report 8947296 (Version 1)
Quarter: 2012Q4

REPORT INFORMATION
  Report Type: 
  Country: GB (occurrence: GB)
  Receive Date: 20121205
  Receipt Date: 20121205
  Transmission Date: 20130627
  Serious: Yes (Disabling)
  Sender: FDA-Public Use
  Company Number: GB-ELI_LILLY_AND_COMPANY-GB201211007208

PATIENT

DRUGS (3)
  1. STRATTERA [Suspect]
     Indication: ATTENTION DEFICIT/HYPERACTIVITY DISORDER
     Dosage: 40 mg, UNK
     Route: 048
     Dates: start: 20120930, end: 20121006
  2. STRATTERA [Suspect]
     Dosage: 80 mg, UNK
     Route: 048
     Dates: start: 20121007, end: 20121026
  3. CONCERTA XL [Concomitant]
     Indication: ATTENTION DEFICIT/HYPERACTIVITY DISORDER
     Dosage: 36 mg, UNK
     Route: 048
     Dates: start: 20110714

REACTIONS (4)
  - Aggression [Recovering/Resolving]
  - Crying [Recovering/Resolving]
  - Emotional disorder [Recovering/Resolving]
  - Personality change [Recovering/Resolving]
